FAERS Safety Report 10204497 (Version 1)
Quarter: 2014Q2

REPORT INFORMATION
  Report Type: Spontaneous
  Country: US (occurrence: US)
  Receive Date: 20140529
  Receipt Date: 20140529
  Transmission Date: 20141212
  Serious: Yes (Other)
  Sender: FDA-Public Use
  Company Number: US-TEVA-484800USA

PATIENT
  Sex: Female

DRUGS (3)
  1. PARAGARD 380A [Suspect]
     Indication: CONTRACEPTION
     Route: 015
     Dates: start: 20140130, end: 20140313
  2. ZOLOFT [Concomitant]
     Indication: ANXIETY
  3. ZOLOFT [Concomitant]
     Indication: DEPRESSION

REACTIONS (1)
  - Device dislocation [Recovered/Resolved]
